FAERS Safety Report 6173407-2 (Version None)
Quarter: 2009Q2

REPORT INFORMATION
  Report Type: 
  Country: None (occurrence: None)
  Receive Date: 20090430
  Receipt Date: 20090423
  Transmission Date: 20091009
  Serious: Yes (Hospitalization, Other)
  Sender: FDA-Public Use
  Company Number: SE-ABBOTT-09P-150-0566074-00

PATIENT
  Age: 40 Year
  Sex: Male

DRUGS (4)
  1. HUMIRA [Suspect]
     Indication: CROHN'S DISEASE
     Dosage: 3 INJECTIONS, 1 IN 2 WEEKS
     Route: 058
     Dates: start: 20040301, end: 20040330
  2. REMICADE [Suspect]
     Indication: CROHN'S DISEASE
     Dosage: 400 MILLIGRAMS GIVEN 5 TIMES
     Route: 042
     Dates: start: 20030926, end: 20040616
  3. IMUREL [Suspect]
     Indication: CROHN'S DISEASE
  4. PENTASA [Concomitant]
     Indication: DRUG USE FOR UNKNOWN INDICATION
     Route: 048

REACTIONS (4)
  - ENDOCRINE NEOPLASM MALIGNANT [None]
  - METASTASIS [None]
  - SKIN CANCER [None]
  - THYROID CANCER [None]
